FAERS Safety Report 7935956 (Version 2)
Quarter: 2013Q4

REPORT INFORMATION
  Report Type: Report from Study
  Country: US (occurrence: US)
  Receive Date: 20110509
  Receipt Date: 20131111
  Transmission Date: 20140711
  Serious: Yes (Other)
  Sender: FDA-Public Use
  Company Number: US-ALEXION-A201000896

PATIENT
  Age: 39 Year
  Sex: Female

DRUGS (6)
  1. SOLIRIS [Suspect]
     Indication: PAROXYSMAL NOCTURNAL HAEMOGLOBINURIA
     Dosage: 600 MG, QW
     Route: 042
     Dates: start: 20091009, end: 200910
  2. SOLIRIS [Suspect]
     Dosage: 900 MG, Q2W
     Route: 042
     Dates: start: 2009, end: 200912
  3. SOLIRIS [Suspect]
     Dosage: 600 MG, QW
     Route: 042
     Dates: start: 201003, end: 2010
  4. SOLIRIS [Suspect]
     Dosage: 900 MG, Q2W
     Route: 042
     Dates: start: 201004
  5. MAGNESIUM [Concomitant]
     Dosage: UNK
     Route: 048
  6. MULTIVITAMINS [Concomitant]
     Indication: ROUTINE HEALTH MAINTENANCE
     Dosage: UNK
     Route: 048

REACTIONS (8)
  - Respiratory arrest [Recovering/Resolving]
  - Bone marrow failure [Not Recovered/Not Resolved]
  - Haemochromatosis [Unknown]
  - Serum ferritin increased [Not Recovered/Not Resolved]
  - Menorrhagia [Recovered/Resolved]
  - Loss of consciousness [Unknown]
  - Malaise [Unknown]
  - Arthralgia [Recovered/Resolved]
